FAERS Safety Report 19544731 (Version 1)
Quarter: 2021Q3

REPORT INFORMATION
  Report Type: Spontaneous
  Country: FI (occurrence: FI)
  Receive Date: 20210713
  Receipt Date: 20210713
  Transmission Date: 20211014
  Serious: Yes (Disabling, Other)
  Sender: FDA-Public Use
  Company Number: FI-PFIZER INC-2021792831

PATIENT
  Age: 59 Year
  Sex: Male

DRUGS (1)
  1. SALAZOPYRIN [Suspect]
     Active Substance: SULFASALAZINE
     Indication: RHEUMATOID ARTHRITIS
     Dosage: 1000 MG, DAILY
     Route: 048
     Dates: start: 20210318, end: 20210421

REACTIONS (6)
  - Papule [Recovering/Resolving]
  - Skin exfoliation [Recovering/Resolving]
  - Oral pain [Recovering/Resolving]
  - Hyperaesthesia [Recovering/Resolving]
  - Oral discomfort [Recovering/Resolving]
  - Lip pain [Recovering/Resolving]

NARRATIVE: CASE EVENT DATE: 20210414
